FAERS Safety Report 13012272 (Version 1)
Quarter: 2016Q4

REPORT INFORMATION
  Report Type: Spontaneous
  Country: US (occurrence: US)
  Receive Date: 20161208
  Receipt Date: 20161208
  Transmission Date: 20170207
  Serious: Yes (Other)
  Sender: FDA-Public Use
  Company Number: None

PATIENT
  Age: 56 Year
  Sex: Female
  Weight: 77.63 kg

DRUGS (7)
  1. TRAJENTA [Concomitant]
     Active Substance: LINAGLIPTIN
  2. POTASSIUM [Concomitant]
     Active Substance: POTASSIUM
  3. GLUCOPHAGE [Suspect]
     Active Substance: METFORMIN HYDROCHLORIDE
     Indication: TYPE 2 DIABETES MELLITUS
     Dosage: 500MG 1 A DAY FIRST WEEKS BY MOUTH
     Route: 048
     Dates: start: 20161109, end: 20161113
  4. ROBAXIN (METHOCARBAMOL) [Concomitant]
  5. LEVOTHYROXIN [Concomitant]
     Active Substance: LEVOTHYROXINE
  6. CAL SUPPLEMENT [Concomitant]
  7. VITAMIN D [Concomitant]
     Active Substance: CHOLECALCIFEROL

REACTIONS (4)
  - Peripheral coldness [None]
  - Insomnia [None]
  - Hypoaesthesia [None]
  - Muscle spasms [None]

NARRATIVE: CASE EVENT DATE: 20161109
